FAERS Safety Report 15309937 (Version 1)
Quarter: 2018Q3

REPORT INFORMATION
  Report Type: Spontaneous
  Country: US (occurrence: US)
  Receive Date: 20180812
  Receipt Date: 20180812
  Transmission Date: 20181010
  Serious: No
  Sender: FDA-Public Use
  Company Number: None

PATIENT
  Age: 50 Year
  Sex: Female
  Weight: 63.9 kg

DRUGS (5)
  1. MEDICAL MARIJUANA [Concomitant]
     Active Substance: CANNABIS SATIVA SUBSP. INDICA TOP
  2. CYCLOBENZAPRINE. [Concomitant]
     Active Substance: CYCLOBENZAPRINE
  3. METHYLPREDNISOLONE 4MG DOSPAK 21^S [Suspect]
     Active Substance: METHYLPREDNISOLONE
     Indication: INFLAMMATION
     Dosage: ?          OTHER FREQUENCY:AS DIRECTED;?
     Route: 048
     Dates: start: 20180810, end: 20180812
  4. GABAPENTIN. [Concomitant]
     Active Substance: GABAPENTIN
  5. HYDROCODONE/ACETAMINOPHEN 10?325 [Concomitant]
     Active Substance: ACETAMINOPHEN\HYDROCODONE

REACTIONS (3)
  - Headache [None]
  - Abdominal pain upper [None]
  - Somnolence [None]

NARRATIVE: CASE EVENT DATE: 20180810
